FAERS Safety Report 5920226-5 (Version None)
Quarter: 2008Q4

REPORT INFORMATION
  Report Type: 
  Country: None (occurrence: None)
  Receive Date: 20081016
  Receipt Date: 20080501
  Transmission Date: 20090506
  Serious: No
  Sender: FDA-Public Use
  Company Number: A0725845A

PATIENT
  Age: 73 Year
  Sex: Female

DRUGS (4)
  1. CEFTIN [Suspect]
     Dosage: 1.5TSP TWICE PER DAY
     Route: 048
     Dates: start: 20080429, end: 20080430
  2. EAR DROPS [Concomitant]
  3. VITAMINS [Concomitant]
  4. CALCIUM [Concomitant]

REACTIONS (2)
  - LOCAL SWELLING [None]
  - PRURITUS [None]
